FAERS Safety Report 22101871 (Version 1)
Quarter: 2023Q1

REPORT INFORMATION
  Report Type: Other
  Country: AU (occurrence: None)
  Receive Date: 20230316
  Receipt Date: 20230316
  Transmission Date: 20230418
  Serious: Yes (Hospitalization, Disabling)
  Sender: FDA-Public Use
  Company Number: AU-ROCHE-3302437

PATIENT
  Sex: Female

DRUGS (1)
  1. OCRELIZUMAB [Suspect]
     Active Substance: OCRELIZUMAB
     Indication: Multiple sclerosis
     Route: 042
     Dates: start: 20230306, end: 20230306

REACTIONS (6)
  - Meningitis [Recovered/Resolved]
  - Peripheral swelling [Recovering/Resolving]
  - Crying [Unknown]
  - Headache [Recovering/Resolving]
  - Muscular weakness [Recovering/Resolving]
  - Anxiety [Unknown]
